FAERS Safety Report 25310220 (Version 2)
Quarter: 2025Q2

REPORT INFORMATION
  Report Type: Spontaneous
  Country: JP (occurrence: JP)
  Receive Date: 20250514
  Receipt Date: 20250530
  Transmission Date: 20250717
  Serious: Yes (Other)
  Sender: ASTELLAS
  Company Number: JP-ASTELLAS-2025-AER-025253

PATIENT
  Age: 51 Year
  Sex: Male

DRUGS (2)
  1. PADCEV [Suspect]
     Active Substance: ENFORTUMAB VEDOTIN-EJFV
     Indication: Transitional cell carcinoma
     Dosage: 2 CONSECUTIVE WEEKS OF ADMINISTRATION, AND DISCONTINUED FOR 1 WEEK
     Route: 042
     Dates: start: 20250417
  2. KEYTRUDA [Suspect]
     Active Substance: PEMBROLIZUMAB
     Indication: Transitional cell carcinoma
     Dosage: ADMINISTERED 200 MG ONCE EVERY 3 WEEKS
     Route: 042
     Dates: start: 20250417

REACTIONS (3)
  - Pancreatitis [Not Recovered/Not Resolved]
  - Hepatic function abnormal [Unknown]
  - Erythema [Unknown]

NARRATIVE: CASE EVENT DATE: 20250401
